FAERS Safety Report 5289464-1 (Version None)
Quarter: 2007Q2

REPORT INFORMATION
  Report Type: 
  Country: None (occurrence: None)
  Receive Date: 20070406
  Receipt Date: 20070327
  Transmission Date: 20071010
  Serious: Yes (Hospitalization, Other)
  Sender: FDA-Public Use
  Company Number: PHBS2007JP04908

PATIENT
  Age: 82 Year
  Sex: Female

DRUGS (2)
  1. TEGRETOL [Suspect]
     Indication: MEMORY IMPAIRMENT
     Dosage: 100 MG/DAY
     Route: 048
     Dates: start: 20051207, end: 20060201
  2. ARICEPT [Concomitant]
     Dosage: 5 MG/DAY
     Dates: start: 20051207, end: 20060201

REACTIONS (18)
  - ALANINE AMINOTRANSFERASE INCREASED [None]
  - ASPARTATE AMINOTRANSFERASE INCREASED [None]
  - BLOOD CREATININE INCREASED [None]
  - BLOOD UREA INCREASED [None]
  - C-REACTIVE PROTEIN INCREASED [None]
  - CYTOMEGALOVIRUS ANTIBODY POSITIVE [None]
  - CYTOMEGALOVIRUS INFECTION [None]
  - DRUG ERUPTION [None]
  - DRUG HYPERSENSITIVITY [None]
  - EOSINOPHIL PERCENTAGE INCREASED [None]
  - FALL [None]
  - HUMAN HERPES VIRUS 6 SEROLOGY POSITIVE [None]
  - INFLAMMATION [None]
  - LIVER DISORDER [None]
  - MALAISE [None]
  - PYREXIA [None]
  - RENAL DISORDER [None]
  - WHITE BLOOD CELL COUNT INCREASED [None]
